FAERS Safety Report 15539489 (Version 1)
Quarter: 2018Q4

REPORT INFORMATION
  Report Type: Spontaneous
  Country: ES (occurrence: ES)
  Receive Date: 20181023
  Receipt Date: 20181023
  Transmission Date: 20190205
  Serious: Yes (Other)
  Sender: FDA-Public Use
  Company Number: ES-TEVA-2018-ES-967542

PATIENT
  Age: 58 Year
  Sex: Female

DRUGS (3)
  1. AZITROMICINA (7019A) [Suspect]
     Active Substance: AZITHROMYCIN
     Indication: RESPIRATORY TRACT INFECTION
     Dosage: 500 MILLIGRAM DAILY;
     Route: 048
     Dates: start: 20180904, end: 20180905
  2. ZADITEN 0,25 MG/ML COLIRIO EN SOLUCION EN ENVASE UNIDOSIS , 20 ENVASES [Concomitant]
     Route: 047
  3. VENTOLIN 100 MICROGRAMOS/INHALACI?N SUSPENSI?N PARA INHALACI?N EN ENVA [Concomitant]
     Route: 055

REACTIONS (3)
  - Diarrhoea [Recovered/Resolved]
  - Rectal haemorrhage [Recovered/Resolved]
  - Abdominal pain [Recovered/Resolved]

NARRATIVE: CASE EVENT DATE: 20180905
